FAERS Safety Report 7680362-2 (Version None)
Quarter: 2011Q3

REPORT INFORMATION
  Report Type: 
  Country: None (occurrence: None)
  Receive Date: 20110812
  Receipt Date: 20110805
  Transmission Date: 20111222
  Serious: Yes (Hospitalization)
  Sender: FDA-Public Use
  Company Number: FR-GLAXOSMITHKLINE-B0737522A

PATIENT
  Sex: Female

DRUGS (5)
  1. LAMICTAL [Suspect]
     Indication: STATUS EPILEPTICUS
     Route: 048
     Dates: start: 20110624, end: 20110628
  2. POTASSIUM CHLORIDE [Concomitant]
     Indication: HYPOKALAEMIA
     Dosage: 1UNIT TWICE PER DAY
     Route: 048
     Dates: start: 20110629, end: 20110630
  3. TOPIRAMATE [Suspect]
     Indication: STATUS EPILEPTICUS
     Route: 048
     Dates: start: 20110401, end: 20110628
  4. VALPROATE SODIUM [Concomitant]
     Indication: STATUS EPILEPTICUS
     Dosage: 1250MG PER DAY
     Route: 048
     Dates: start: 20060101
  5. VIMPAT [Suspect]
     Indication: STATUS EPILEPTICUS
     Route: 048
     Dates: start: 20110628

REACTIONS (3)
  - STATUS EPILEPTICUS [None]
  - DRUG INEFFECTIVE [None]
  - HYPOKALAEMIA [None]
